FAERS Safety Report 14997219 (Version 1)
Quarter: 2018Q2

REPORT INFORMATION
  Report Type: Spontaneous
  Country: ID (occurrence: ID)
  Receive Date: 20180611
  Receipt Date: 20180611
  Transmission Date: 20180711
  Serious: Yes (Death, Other)
  Sender: FDA-Public Use
  Company Number: ID-ASTRAZENECA-2018SE75676

PATIENT
  Age: 68 Year
  Sex: Male

DRUGS (2)
  1. IRESSA [Suspect]
     Active Substance: GEFITINIB
     Indication: NON-SMALL CELL LUNG CANCER
     Route: 048
     Dates: start: 20180424
  2. IRESSA [Suspect]
     Active Substance: GEFITINIB
     Indication: ADENOCARCINOMA
     Route: 048
     Dates: start: 20180424

REACTIONS (3)
  - Haemoptysis [Recovered/Resolved]
  - Pleural effusion [Fatal]
  - Epistaxis [Recovered/Resolved]
